FAERS Safety Report 5009659-1 (Version None)
Quarter: 2006Q2

REPORT INFORMATION
  Report Type: 
  Country: None (occurrence: None)
  Receive Date: 20060524
  Receipt Date: 20060512
  Transmission Date: 20061013
  Serious: Yes (Hospitalization)
  Sender: FDA-Public Use
  Company Number: 2005160533

PATIENT
  Age: 27 Year
  Sex: Female
  Weight: 57 kg

DRUGS (6)
  1. EPOPROSTENOL [Suspect]
     Route: 042
     Dates: start: 20030117
  2. SILDENAFIL CITRATE [Suspect]
     Dosage: 80MG THREE TIMES PER DAY
     Route: 048
     Dates: start: 20040507
  3. FRUMIL [Concomitant]
     Dates: start: 20051031
  4. WARFARIN SODIUM [Concomitant]
     Dates: start: 20040506
  5. NYSTATIN [Concomitant]
  6. METOCLOPRAMIDE [Concomitant]

REACTIONS (11)
  - CHEST PAIN [None]
  - COUGH [None]
  - DIZZINESS [None]
  - DYSPNOEA [None]
  - DYSPNOEA EXACERBATED [None]
  - HEADACHE [None]
  - INFLAMMATORY BOWEL DISEASE [None]
  - LETHARGY [None]
  - LOSS OF CONSCIOUSNESS [None]
  - NAUSEA [None]
  - RECTAL HAEMORRHAGE [None]
